FAERS Safety Report 10179210 (Version 1)
Quarter: 2014Q2

REPORT INFORMATION
  Report Type: Spontaneous
  Country: US (occurrence: US)
  Receive Date: 20140519
  Receipt Date: 20140519
  Transmission Date: 20141212
  Serious: No
  Sender: FDA-Public Use
  Company Number: US-PFIZER INC-2014135087

PATIENT
  Age: 67 Year
  Sex: Female
  Weight: 74.83 kg

DRUGS (2)
  1. GABAPENTIN [Suspect]
     Indication: NEURALGIA
     Dosage: 300 MG, UNK
     Dates: start: 20140205, end: 20140218
  2. HYDROCODONE [Concomitant]
     Indication: ARTHRITIS
     Dosage: 325 MG, AS NEEDED

REACTIONS (4)
  - Tinnitus [Not Recovered/Not Resolved]
  - Nasopharyngitis [Recovered/Resolved]
  - Balance disorder [Recovered/Resolved]
  - Gait disturbance [Recovered/Resolved]
